FAERS Safety Report 6139833-2 (Version None)
Quarter: 2009Q1

REPORT INFORMATION
  Report Type: 
  Country: None (occurrence: None)
  Receive Date: 20090330
  Receipt Date: 20090330
  Transmission Date: 20090719
  Serious: No
  Sender: FDA-Public Use
  Company Number: None

PATIENT
  Age: 26 Year
  Sex: Female

DRUGS (1)
  1. HEPARIN [Suspect]
     Dosage: 5000 UNITS BID SQ
     Route: 058
     Dates: start: 20090222, end: 20090224

REACTIONS (1)
  - HYPERSENSITIVITY [None]
